FAERS Safety Report 7918351-2 (Version None)
Quarter: 2011Q4

REPORT INFORMATION
  Report Type: 
  Country: None (occurrence: None)
  Receive Date: 20111116
  Receipt Date: 20111114
  Transmission Date: 20120403
  Serious: Yes (Disabling, Other)
  Sender: FDA-Public Use
  Company Number: US-AMGEN-USASP2011059292

PATIENT
  Age: 65 Year
  Sex: Male
  Weight: 89.8 kg

DRUGS (2)
  1. NPLATE [Suspect]
     Indication: THROMBOCYTOPENIC PURPURA
     Route: 058
     Dates: start: 20110623, end: 20111020
  2. NPLATE [Suspect]
     Indication: IDIOPATHIC THROMBOCYTOPENIC PURPURA

REACTIONS (7)
  - TOXIC NEUROPATHY [None]
  - PERONEAL NERVE PALSY [None]
  - DEEP VEIN THROMBOSIS [None]
  - WALKING AID USER [None]
  - NEUROPATHY PERIPHERAL [None]
  - ABASIA [None]
  - PAIN IN EXTREMITY [None]
